FAERS Safety Report 7675594-3 (Version None)
Quarter: 2011Q3

REPORT INFORMATION
  Report Type: 
  Country: None (occurrence: None)
  Receive Date: 20110810
  Receipt Date: 20080729
  Transmission Date: 20111222
  Serious: Yes (Disabling, Other)
  Sender: FDA-Public Use
  Company Number: US-BAYER-200818713NA

PATIENT
  Age: 55 Year
  Sex: Male
  Weight: 80.3 kg

DRUGS (33)
  1. MAGNEVIST [Suspect]
     Dosage: 40 ML, ONCE
     Dates: start: 20060622, end: 20060622
  2. OMNISCAN [Suspect]
     Indication: NUCLEAR MAGNETIC RESONANCE IMAGING BRAIN
     Dosage: 20 ML, ONCE
     Dates: start: 20010604, end: 20010604
  3. OMNISCAN [Suspect]
     Indication: NUCLEAR MAGNETIC RESONANCE IMAGING
     Dosage: 15 ML, ONCE
     Dates: start: 20040206, end: 20040206
  4. LIPITOR [Concomitant]
     Indication: BLOOD CHOLESTEROL INCREASED
     Dosage: UNK
     Dates: start: 19920101
  5. PROGRAF [Concomitant]
     Indication: IMMUNOSUPPRESSION
     Dosage: 4 MG, BID
  6. EPOGEN [Concomitant]
     Dosage: 39600 U WITH EACH DIALYSIS
     Route: 042
  7. ARANESP [Concomitant]
     Indication: RED BLOOD CELL COUNT DECREASED
     Dosage: UNK
     Dates: start: 20050701
  8. CYCLOSPORINE [Concomitant]
     Indication: PROPHYLAXIS AGAINST TRANSPLANT REJECTION
     Dosage: UNK
     Dates: start: 19930101, end: 20020101
  9. THYMOGLOBULIN [Concomitant]
  10. PHENERGAN HCL [Concomitant]
     Dosage: 25 MG, PRN ON DIALYSIS
     Route: 042
  11. NEPHROCAPS [Concomitant]
     Indication: VITAMIN B COMPLEX DEFICIENCY
     Dosage: 1 DAILY
     Route: 048
     Dates: start: 20050101
  12. TOPROL-XL [Concomitant]
     Indication: HYPERTENSION
     Dosage: UNK
     Dates: start: 20060201, end: 20070601
  13. INSULIN [INSULIN] [Concomitant]
     Indication: DIABETES MELLITUS
     Dosage: UNK
     Dates: start: 19930101
  14. SOLU-MEDROL [Concomitant]
  15. ENALAPRIL MALEATE [Concomitant]
     Dosage: 5 MG, QD
     Route: 048
  16. ZOCOR [Concomitant]
     Indication: BLOOD CHOLESTEROL INCREASED
     Dosage: 10 MG, UNK
     Dates: end: 20060101
  17. KLONOPIN [Concomitant]
     Indication: RESTLESS LEGS SYNDROME
     Dosage: 1 MG, QD
  18. ROXICET [Concomitant]
     Indication: PAIN IN EXTREMITY
     Dosage: 10 ML, UNK
  19. ROXICET [Concomitant]
     Indication: ARTHRALGIA
  20. IMMUNE GLOBULIN NOS [Concomitant]
     Route: 042
  21. FOSRENOL [Concomitant]
     Dosage: 500 MG, BID IMMEDIATELY AFTER MEALS
     Route: 048
  22. MAGNEVIST [Suspect]
     Dosage: 40 ML, ONCE (15ML MRI, 25ML MRA)
     Dates: start: 20060222, end: 20060222
  23. PREDNISONE [Concomitant]
     Dosage: UNK
     Dates: start: 20051201, end: 20060201
  24. IMURAN [Concomitant]
     Indication: RENAL TRANSPLANT
     Dosage: UNK
     Dates: start: 19930101, end: 20020101
  25. BENPROPERINE [Concomitant]
     Dosage: 100 MG, OW ON DIALYSIS
     Route: 042
  26. NEURONTIN [Concomitant]
     Indication: PAIN IN EXTREMITY
     Dosage: 300 MG, HS
  27. RITUXIMAB [Concomitant]
  28. PHOSLO [Concomitant]
     Dosage: 3 TABLETS TID
  29. MAGNEVIST [Suspect]
     Indication: NUCLEAR MAGNETIC RESONANCE IMAGING
     Dosage: 40 ML, ONCE
     Dates: start: 20051213, end: 20051213
  30. OMNISCAN [Suspect]
     Indication: ANGIOGRAM
     Dosage: 40 ML, ONCE (20ML MRI, 20ML MRA)
     Dates: start: 20051020, end: 20051020
  31. PREDNISONE [Concomitant]
     Indication: PROPHYLAXIS AGAINST TRANSPLANT REJECTION
     Dosage: UNK
     Dates: start: 19930101, end: 20020101
  32. HEPARIN [Concomitant]
     Indication: DIALYSIS
     Dosage: UNK
     Dates: start: 20050701, end: 20070601
  33. CELLCEPT [Concomitant]
     Indication: IMMUNOSUPPRESSION
     Dosage: 500 MG, BID

REACTIONS (11)
  - NEPHROGENIC SYSTEMIC FIBROSIS [None]
  - ANXIETY [None]
  - PAIN [None]
  - GAIT DISTURBANCE [None]
  - SCAR [None]
  - JOINT CONTRACTURE [None]
  - INJURY [None]
  - SKIN DISCOLOURATION [None]
  - FIBROSIS [None]
  - EMOTIONAL DISTRESS [None]
  - SKIN INDURATION [None]
